FAERS Safety Report 6449700-2 (Version None)
Quarter: 2009Q4

REPORT INFORMATION
  Report Type: 
  Country: None (occurrence: None)
  Receive Date: 20091120
  Receipt Date: 20091109
  Transmission Date: 20100525
  Serious: Yes (Hospitalization)
  Sender: FDA-Public Use
  Company Number: DE-AMGEN-US374694

PATIENT
  Age: 65 Year
  Sex: Female
  Weight: 104 kg

DRUGS (8)
  1. ENBREL [Suspect]
     Indication: PSORIATIC ARTHROPATHY
     Route: 058
     Dates: start: 20090430, end: 20091009
  2. ENBREL [Suspect]
     Indication: PUSTULAR PSORIASIS
  3. SOLIAN [Concomitant]
     Route: 048
  4. DICLOFENAC [Concomitant]
     Route: 048
     Dates: start: 20071101
  5. AZULFIDINE [Concomitant]
     Route: 048
     Dates: start: 20071101
  6. DECORTIN-H [Concomitant]
     Route: 048
     Dates: start: 20071101
  7. ORFIRIL - SLOW RELEASE [Concomitant]
     Route: 048
  8. CHLORPROTHIXENE [Concomitant]
     Route: 048

REACTIONS (2)
  - CONDITION AGGRAVATED [None]
  - PUSTULAR PSORIASIS [None]
